FAERS Safety Report 5504296-4 (Version None)
Quarter: 2007Q4

REPORT INFORMATION
  Report Type: 
  Country: None (occurrence: None)
  Receive Date: 20071030
  Receipt Date: 20071015
  Transmission Date: 20080405
  Serious: Yes (Congenital Anomaly)
  Sender: FDA-Public Use
  Company Number: 162896ISR

PATIENT
  Sex: Female

DRUGS (1)
  1. CIPROFLOXACIN [Suspect]
     Dosage: 500 MG (250 MG, 2 IN 1 D), TRANSPLACENTAL
     Route: 064
     Dates: start: 20070215, end: 20070219

REACTIONS (2)
  - ABNORMAL PALMAR/PLANTAR CREASES [None]
  - DRUG EXPOSURE DURING PREGNANCY [None]
